FAERS Safety Report 22171026 (Version 3)
Quarter: 2023Q2

REPORT INFORMATION
  Report Type: Spontaneous
  Country: US (occurrence: US)
  Receive Date: 20230404
  Receipt Date: 20230518
  Transmission Date: 20230722
  Serious: Yes (Other)
  Sender: FDA-Public Use
  Company Number: US-BRISTOL-MYERS SQUIBB COMPANY-2023-045213

PATIENT
  Age: 73 Year
  Sex: Female

DRUGS (1)
  1. LENALIDOMIDE [Suspect]
     Active Substance: LENALIDOMIDE
     Indication: Myelodysplastic syndrome
     Dosage: BY MOUTH, TAKE 1 CAPSULE BY MOUTH MONDAY THROUGH THURSDAY
     Route: 048
     Dates: start: 20221031

REACTIONS (2)
  - Cellulitis [Recovered/Resolved]
  - Off label use [Unknown]
